FAERS Safety Report 17963123 (Version 1)
Quarter: 2020Q2

REPORT INFORMATION
  Report Type: Report from Study
  Country: None (occurrence: US)
  Receive Date: 20200630
  Receipt Date: 20200630
  Transmission Date: 20200714
  Serious: No
  Sender: FDA-Public Use
  Company Number: US-BIOVITRUM-2019US2236

PATIENT
  Sex: Female

DRUGS (2)
  1. KINERET [Suspect]
     Active Substance: ANAKINRA
     Indication: PYREXIA
     Route: 058
     Dates: start: 20190402
  2. KINERET [Suspect]
     Active Substance: ANAKINRA
     Route: 058
     Dates: start: 20190401

REACTIONS (6)
  - Contusion [Unknown]
  - Injection site pain [Unknown]
  - Postpartum disorder [Unknown]
  - Anxiety [Unknown]
  - Injection site reaction [Unknown]
  - Off label use [Not Recovered/Not Resolved]
